FAERS Safety Report 5259126-5 (Version None)
Quarter: 2007Q1

REPORT INFORMATION
  Report Type: 
  Country: None (occurrence: None)
  Receive Date: 20070308
  Receipt Date: 20070228
  Transmission Date: 20070707
  Serious: Yes (Death, Life-Threatening, Hospitalization)
  Sender: FDA-Public Use
  Company Number: BE-JNJFOC-20070206514

PATIENT
  Age: 77 Year
  Sex: Female

DRUGS (21)
  1. LEVOFLOXACIN [Suspect]
     Indication: NOSOCOMIAL INFECTION
     Route: 042
  2. LEVOFLOXACIN [Suspect]
     Route: 048
  3. BICLAR [Concomitant]
     Indication: PNEUMONIA PRIMARY ATYPICAL
     Route: 065
  4. LASIX [Concomitant]
     Route: 065
  5. CLEXANE [Concomitant]
     Route: 065
  6. MOVICOL [Concomitant]
     Route: 065
  7. EMCONCOR [Concomitant]
     Route: 065
  8. SINGULAIR [Concomitant]
     Route: 065
  9. TRAZOLAN [Concomitant]
     Route: 065
  10. MEDROL [Concomitant]
     Route: 065
  11. NEXIUM [Concomitant]
     Route: 065
  12. XANTHIUM [Concomitant]
     Route: 065
  13. LYSOMUCIL [Concomitant]
     Route: 065
  14. TILDIEM [Concomitant]
     Route: 065
  15. ASAFLOW [Concomitant]
     Route: 065
  16. ARICEPT [Concomitant]
     Route: 065
  17. EFFEXOR [Concomitant]
     Route: 065
  18. SPIRIVA [Concomitant]
     Route: 065
  19. DUOVENT [Concomitant]
     Route: 065
  20. SERETIDE [Concomitant]
     Route: 065
  21. PULMICORT [Concomitant]
     Route: 065

REACTIONS (2)
  - CARDIOGENIC SHOCK [None]
  - MYOCARDIAL ISCHAEMIA [None]
